FAERS Safety Report 21234344 (Version 3)
Quarter: 2022Q3

REPORT INFORMATION
  Report Type: Spontaneous
  Country: GB (occurrence: GB)
  Receive Date: 20220819
  Receipt Date: 20220907
  Transmission Date: 20221026
  Serious: Yes (Death, Other)
  Sender: FDA-Public Use
  Company Number: GB-MHRA-ADR 24524194

PATIENT
  Sex: Male
  Weight: 69 kg

DRUGS (56)
  1. NITROGLYCERIN [Suspect]
     Active Substance: NITROGLYCERIN
     Indication: Product used for unknown indication
     Dosage: UNK UNK, PRN
  2. TACROLIMUS [Suspect]
     Active Substance: TACROLIMUS
     Indication: Prophylaxis against transplant rejection
     Dosage: 4 MG, QD
     Route: 048
     Dates: start: 20180128, end: 20180130
  3. TACROLIMUS [Suspect]
     Active Substance: TACROLIMUS
     Indication: Renal transplant
     Dosage: 1.5 MG, BID
     Dates: start: 20180127
  4. TACROLIMUS [Suspect]
     Active Substance: TACROLIMUS
     Dosage: 2 MG, BID
     Route: 048
     Dates: start: 20180128
  5. TACROLIMUS [Suspect]
     Active Substance: TACROLIMUS
     Dosage: 1.5 MG, BID
     Route: 048
     Dates: start: 20100127, end: 20180130
  6. TACROLIMUS [Suspect]
     Active Substance: TACROLIMUS
     Dosage: 15 MG, BID
     Route: 048
     Dates: start: 20180127, end: 20180130
  7. ALFACALCIDOL [Suspect]
     Active Substance: ALFACALCIDOL
     Indication: Product used for unknown indication
     Dosage: 500 MG, QD
     Route: 048
  8. BISOPROLOL [Suspect]
     Active Substance: BISOPROLOL
     Indication: Product used for unknown indication
     Dosage: UNK UNK, PRN
  9. CEFUROXIME [Suspect]
     Active Substance: CEFUROXIME
     Indication: Product used for unknown indication
     Dosage: UNK, PRN
     Dates: start: 20180131
  10. OMEPRAZOLE [Suspect]
     Active Substance: OMEPRAZOLE
     Indication: Duodenal ulcer
     Dosage: 20 MG, QD
     Route: 048
  11. OMEPRAZOLE [Suspect]
     Active Substance: OMEPRAZOLE
     Dosage: 20 MG, QAM
     Route: 048
  12. OMEPRAZOLE [Suspect]
     Active Substance: OMEPRAZOLE
     Dosage: 20 MG, Q MONTH
     Route: 048
  13. CLARITHROMYCIN [Suspect]
     Active Substance: CLARITHROMYCIN
     Indication: Pneumonia
     Dosage: 500 MG, QOD
     Route: 042
     Dates: start: 20180127, end: 20180131
  14. CLARITHROMYCIN [Suspect]
     Active Substance: CLARITHROMYCIN
     Indication: Lower respiratory tract infection
     Dosage: 4000 MG
  15. CLARITHROMYCIN [Suspect]
     Active Substance: CLARITHROMYCIN
     Dosage: 250 MG, QD
     Route: 042
  16. CLARITHROMYCIN [Suspect]
     Active Substance: CLARITHROMYCIN
     Dosage: 500 MG, BID
     Route: 042
  17. DOXYCYCLINE [Suspect]
     Active Substance: DOXYCYCLINE
     Indication: Product used for unknown indication
     Dosage: UNK, PRN
  18. ENVARSUS XR [Suspect]
     Active Substance: TACROLIMUS
     Indication: Prophylaxis against transplant rejection
     Dosage: 1.5 MG, BID
     Route: 048
     Dates: start: 20180127, end: 20180131
  19. ENVARSUS XR [Suspect]
     Active Substance: TACROLIMUS
     Dosage: 27 MG, UNKNOWN
  20. DEXTROSE [Suspect]
     Active Substance: DEXTROSE
     Indication: Product used for unknown indication
     Dosage: UNK, PRN
     Dates: start: 20180130
  21. HYDROCORTISONE [Suspect]
     Active Substance: HYDROCORTISONE
     Indication: Product used for unknown indication
     Dosage: ACTUAL: 50 MG TID
     Route: 042
     Dates: start: 20180201
  22. HYDROCORTISONE [Suspect]
     Active Substance: HYDROCORTISONE
     Dosage: 150 MG, TID
     Route: 042
     Dates: start: 20180201
  23. HYDROCORTISONE [Suspect]
     Active Substance: HYDROCORTISONE
     Dosage: 150 MG, QD (50 MG, TID)
     Route: 042
  24. TACROLIMUS [Suspect]
     Active Substance: TACROLIMUS
     Indication: Renal transplant
     Dosage: 1.5 MG, BID
     Dates: start: 20100120, end: 20180130
  25. TACROLIMUS [Suspect]
     Active Substance: TACROLIMUS
     Dosage: 4 MG, QD
     Dates: start: 20180128
  26. TACROLIMUS [Suspect]
     Active Substance: TACROLIMUS
     Dosage: 1.5 MG, QD
     Dates: start: 20180127
  27. TACROLIMUS [Suspect]
     Active Substance: TACROLIMUS
     Dosage: 15 MG, BID
  28. SENNOSIDES A AND B [Suspect]
     Active Substance: SENNOSIDES A AND B
     Indication: Product used for unknown indication
     Dosage: UNK, PRN
  29. DEXTROSE [Suspect]
     Active Substance: DEXTROSE
     Indication: Product used for unknown indication
     Dosage: UNK, PRN
     Dates: start: 20180130
  30. PREDNISOLONE [Suspect]
     Active Substance: PREDNISOLONE
     Indication: Product used for unknown indication
     Dosage: INCREASE PREDNISOLONE TO 10MG FOR 5 DAYS
     Dates: start: 20180127
  31. PREDNISOLONE [Suspect]
     Active Substance: PREDNISOLONE
     Dosage: 5 MG, PRN
     Route: 048
     Dates: start: 20180127
  32. GLUCAGON [Suspect]
     Active Substance: GLUCAGON
     Indication: Product used for unknown indication
     Dosage: UNK, PRN
     Route: 030
     Dates: start: 20180130
  33. EPLERENONE [Suspect]
     Active Substance: EPLERENONE
     Indication: Product used for unknown indication
     Dosage: 25 MG, QD (AT MORNING)
     Dates: start: 20180130, end: 20180130
  34. EPLERENONE [Suspect]
     Active Substance: EPLERENONE
     Dosage: 25 MG, Q MONTH
     Dates: start: 20180130, end: 20180130
  35. FUROSEMIDE [Suspect]
     Active Substance: FUROSEMIDE
     Indication: Product used for unknown indication
     Dosage: 80 MG, Q MONTH
     Route: 048
     Dates: start: 20180130
  36. FUROSEMIDE [Suspect]
     Active Substance: FUROSEMIDE
     Dosage: 80MG MORNING AND 40MG AT 12 PM
     Dates: start: 20180130
  37. FUROSEMIDE [Suspect]
     Active Substance: FUROSEMIDE
     Dosage: 80 MG, QD
     Route: 048
     Dates: end: 20180130
  38. FUROSEMIDE [Suspect]
     Active Substance: FUROSEMIDE
     Dosage: 40 MG AT 12PM
  39. ALLOPURINOL [Concomitant]
     Active Substance: ALLOPURINOL
  40. BETAHISTINE [Concomitant]
     Active Substance: BETAHISTINE
  41. CHOLECALCIFEROL [Concomitant]
     Active Substance: CHOLECALCIFEROL
  42. GLICLAZIDE [Concomitant]
     Active Substance: GLICLAZIDE
  43. ALBUTEROL [Concomitant]
     Active Substance: ALBUTEROL
  44. HERBALS\SENNOSIDES [Concomitant]
     Active Substance: HERBALS\SENNOSIDES
  45. NITROGLYCERIN [Concomitant]
     Active Substance: NITROGLYCERIN
  46. CALCIUM CARBONATE [Concomitant]
     Active Substance: CALCIUM CARBONATE
  47. ENVARSUS XR [Concomitant]
     Active Substance: TACROLIMUS
  48. DEXTROSE [Concomitant]
     Active Substance: DEXTROSE
     Dosage: UNK
     Dates: start: 20180130
  49. ALFACALCIDOL [Concomitant]
     Active Substance: ALFACALCIDOL
  50. BISOPROLOL [Concomitant]
     Active Substance: BISOPROLOL
  51. FUROSEMIDE [Concomitant]
     Active Substance: FUROSEMIDE
  52. HYDROCORTISONE ACETATE [Concomitant]
     Active Substance: HYDROCORTISONE ACETATE
  53. NITROGLYCERIN [Concomitant]
     Active Substance: NITROGLYCERIN
  54. OMEPRAZOLE [Concomitant]
     Active Substance: OMEPRAZOLE
  55. PREDNISOLONE [Concomitant]
     Active Substance: PREDNISOLONE
     Dosage: UNK
     Dates: start: 20180127
  56. SENNOSIDES A AND B [Concomitant]
     Active Substance: SENNOSIDES A AND B

REACTIONS (34)
  - Oesophageal carcinoma [Fatal]
  - Myocardial ischaemia [Fatal]
  - Pneumonia [Fatal]
  - Acute kidney injury [Fatal]
  - Cardiac failure congestive [Fatal]
  - Oesophageal perforation [Fatal]
  - Renal impairment [Fatal]
  - Superinfection [Fatal]
  - Lung consolidation [Fatal]
  - Haemoptysis [Fatal]
  - Pleural effusion [Fatal]
  - Soft tissue mass [Fatal]
  - Hypoglycaemia [Fatal]
  - Rales [Fatal]
  - Inflammatory marker increased [Fatal]
  - Lower respiratory tract infection [Fatal]
  - Cough [Fatal]
  - Productive cough [Fatal]
  - Dyspnoea [Fatal]
  - Swelling [Fatal]
  - Dysphagia [Fatal]
  - Sepsis [Fatal]
  - Multimorbidity [Fatal]
  - Cardiomegaly [Fatal]
  - Pyrexia [Fatal]
  - Malaise [Fatal]
  - Ascites [Fatal]
  - Immunosuppressant drug level increased [Fatal]
  - Drug interaction [Fatal]
  - Transplant failure [Fatal]
  - Drug level increased [Fatal]
  - Toxicity to various agents [Fatal]
  - Labelled drug-drug interaction medication error [Fatal]
  - Rash [Fatal]

NARRATIVE: CASE EVENT DATE: 20180118
